FAERS Safety Report 8261006-8 (Version None)
Quarter: 2012Q2

REPORT INFORMATION
  Report Type: 
  Country: None (occurrence: None)
  Receive Date: 20120405
  Receipt Date: 20120329
  Transmission Date: 20120825
  Serious: Yes (Other)
  Sender: FDA-Public Use
  Company Number: US-PFIZER INC-2012081571

PATIENT
  Sex: Female

DRUGS (2)
  1. ADDERALL 5 [Concomitant]
     Dosage: UNK
  2. PRISTIQ [Suspect]
     Dosage: 150 MG, 1X/DAY (50 MG, 3 QD)

REACTIONS (1)
  - DEPRESSIVE SYMPTOM [None]
